FAERS Safety Report 14355073 (Version 4)
Quarter: 2018Q1

REPORT INFORMATION
  Report Type: Report from Study
  Country: CA (occurrence: CA)
  Receive Date: 20180105
  Receipt Date: 20180222
  Transmission Date: 20180509
  Serious: No
  Sender: FDA-Public Use
  Company Number: CA-SA-2017SA267221

PATIENT
  Age: 32 Year
  Sex: Female

DRUGS (6)
  1. RANITIDINE. [Concomitant]
     Active Substance: RANITIDINE
     Indication: PREMEDICATION
     Route: 048
     Dates: start: 20171220, end: 20171222
  2. LEMTRADA [Suspect]
     Active Substance: ALEMTUZUMAB
     Indication: RELAPSING-REMITTING MULTIPLE SCLEROSIS
     Route: 041
     Dates: start: 20171220, end: 20171222
  3. METHYLPREDNISOLONE. [Concomitant]
     Active Substance: METHYLPREDNISOLONE
     Indication: PREMEDICATION
     Route: 042
     Dates: start: 20171220, end: 20171222
  4. TYLENOL [Concomitant]
     Active Substance: ACETAMINOPHEN
     Indication: PREMEDICATION
     Route: 048
     Dates: start: 20171220, end: 20171222
  5. ACYCLOVIR. [Concomitant]
     Active Substance: ACYCLOVIR
     Indication: PREMEDICATION
     Route: 048
     Dates: start: 20171220
  6. REACTINE [Concomitant]
     Active Substance: CETIRIZINE HYDROCHLORIDE
     Indication: PREMEDICATION
     Route: 048
     Dates: start: 20171220, end: 20171222

REACTIONS (15)
  - Rash [Recovered/Resolved]
  - Eye swelling [Recovered/Resolved]
  - Neutrophil count decreased [Unknown]
  - Pruritus [Recovering/Resolving]
  - Malaise [Recovered/Resolved]
  - White blood cell count decreased [Unknown]
  - Dizziness [Recovered/Resolved]
  - Infusion site pain [Recovered/Resolved]
  - Dry skin [Recovering/Resolving]
  - Urticaria [Recovered/Resolved]
  - Insomnia [Recovered/Resolved]
  - Lymphocyte count decreased [Unknown]
  - Fluid retention [Recovered/Resolved]
  - Swelling face [Recovered/Resolved]
  - Urine abnormality [Unknown]

NARRATIVE: CASE EVENT DATE: 201712
